FAERS Safety Report 15144169 (Version 1)
Quarter: 2018Q3

REPORT INFORMATION
  Report Type: Spontaneous
  Country: US (occurrence: US)
  Receive Date: 20180713
  Receipt Date: 20180713
  Transmission Date: 20181010
  Serious: No
  Sender: FDA-Public Use
  Company Number: US-PERRIGO-17US025664

PATIENT
  Sex: Male
  Weight: 77.98 kg

DRUGS (2)
  1. MINOXIDIL. [Suspect]
     Active Substance: MINOXIDIL
     Indication: ALOPECIA
     Dosage: 1 ML, BID
     Route: 061
     Dates: start: 201707, end: 20170724
  2. DRUGS USED IN BENIGN PROSTATIC HYPERTROPHY [Concomitant]
     Active Substance: UNSPECIFIED INGREDIENT
     Indication: PROSTATOMEGALY
     Dosage: UNK
     Route: 065
     Dates: end: 2017

REACTIONS (4)
  - Pre-existing disease [Not Recovered/Not Resolved]
  - Chest pain [Not Recovered/Not Resolved]
  - Product administered at inappropriate site [Recovered/Resolved]
  - Drug ineffective [Unknown]

NARRATIVE: CASE EVENT DATE: 201707
